FAERS Safety Report 17848076 (Version 2)
Quarter: 2020Q4

REPORT INFORMATION
  Report Type: Spontaneous
  Country: US (occurrence: US)
  Receive Date: 20200601
  Receipt Date: 20201005
  Transmission Date: 20210113
  Serious: Yes (Other)
  Sender: FDA-Public Use
  Company Number: US-009507513-2005USA009404

PATIENT
  Age: 16 Year
  Sex: Female

DRUGS (1)
  1. SINGULAIR [Suspect]
     Active Substance: MONTELUKAST SODIUM
     Indication: MULTIPLE ALLERGIES
     Dosage: UNK
     Route: 048
     Dates: start: 2015

REACTIONS (5)
  - Schizophrenia [Not Recovered/Not Resolved]
  - Self-injurious ideation [Not Recovered/Not Resolved]
  - Violence-related symptom [Not Recovered/Not Resolved]
  - Suicidal ideation [Not Recovered/Not Resolved]
  - Homicidal ideation [Not Recovered/Not Resolved]

NARRATIVE: CASE EVENT DATE: 2015
